FAERS Safety Report 12200831 (Version 1)
Quarter: 2016Q1

REPORT INFORMATION
  Report Type: Spontaneous
  Country: US (occurrence: US)
  Receive Date: 20160322
  Receipt Date: 20160322
  Transmission Date: 20160526
  Serious: No
  Sender: FDA-Public Use
  Company Number: US-CELGENEUS-USA-2016032623

PATIENT
  Sex: Female

DRUGS (6)
  1. THALOMID [Suspect]
     Active Substance: THALIDOMIDE
     Dosage: 200-250 MG
     Route: 048
     Dates: start: 200407
  2. THALOMID [Suspect]
     Active Substance: THALIDOMIDE
     Indication: PLASMA CELL MYELOMA
     Route: 048
     Dates: start: 200403
  3. THALOMID [Suspect]
     Active Substance: THALIDOMIDE
     Dosage: 300-250 MG
     Route: 048
     Dates: start: 200501
  4. THALOMID [Suspect]
     Active Substance: THALIDOMIDE
     Route: 048
     Dates: start: 200812
  5. THALOMID [Suspect]
     Active Substance: THALIDOMIDE
     Dosage: 200-100 MG
     Route: 048
     Dates: start: 200508
  6. THALOMID [Suspect]
     Active Substance: THALIDOMIDE
     Dosage: 200-100
     Route: 048
     Dates: start: 200508

REACTIONS (1)
  - Feeling jittery [Unknown]
